FAERS Safety Report 9204542 (Version 1)
Quarter: 2013Q1

REPORT INFORMATION
  Report Type: Spontaneous
  Country: US (occurrence: None)
  Receive Date: 20120709
  Receipt Date: 20120709
  Transmission Date: 20140127
  Serious: Yes (Disabling, Other)
  Sender: FDA-Public Use
  Company Number: PHEH2011US009368

PATIENT
  Age: 73 Year
  Sex: Male
  Weight: 93.4 kg

DRUGS (13)
  1. GLEEVEC (IMATINIB) [Suspect]
     Indication: GASTROINTESTINAL STROMAL TUMOUR
     Route: 048
  2. CENTRUM (MINERALS NOS, VITAMINS NOS)TABLET [Concomitant]
  3. PHENERGAN (PROMETHAZINE HYDROCHLORIDE) TABLET [Concomitant]
  4. LIPITOR (ATORVASTATIN CALCIUM) TABLET [Concomitant]
  5. LANSOPRAZOLE (LANSOPRAZOLE) CAPSULE [Concomitant]
  6. HYDROCHLOROTHIAZIDE (HYDROCHLORTHIAZIDE) [Concomitant]
  7. LEVOTHYROXINE (LEVOTHYROXINE) [Concomitant]
  8. CLONIDINE (CLONIDINE) INJECTION [Concomitant]
  9. FLOMAX (TAMSULOSIN HYDROCHLORIDE) [Concomitant]
  10. NITROGLYCERIN (GLYCERYL TRINITRATE)CAPSULE [Concomitant]
  11. FISH OIL (FISH OIL) [Concomitant]
  12. ASPIRIN (ACETYLSALICYLIC ACID) [Concomitant]
  13. POTASSIUM (POTASSIUM) [Concomitant]

REACTIONS (5)
  - Haematoma [None]
  - Haemorrhage [None]
  - Nausea [None]
  - Groin pain [None]
  - Anaemia [None]
